FAERS Safety Report 15819746 (Version 6)
Quarter: 2019Q1

REPORT INFORMATION
  Report Type: Report from Study
  Country: None (occurrence: CA)
  Receive Date: 20190114
  Receipt Date: 20190222
  Transmission Date: 20190417
  Serious: Yes (Other)
  Sender: FDA-Public Use
  Company Number: CA-ABBVIE-18K-028-2218628-00

PATIENT
  Sex: Male
  Weight: 20 kg

DRUGS (6)
  1. PREDNISONE. [Concomitant]
     Active Substance: PREDNISONE
     Dosage: MORNING AND NIGHT
  2. METHOTREXATE. [Concomitant]
     Active Substance: METHOTREXATE
     Indication: UVEITIS
     Route: 048
     Dates: start: 201610
  3. HUMIRA [Suspect]
     Active Substance: ADALIMUMAB
     Indication: UVEITIS
     Route: 058
     Dates: start: 20170626
  4. PREDNISONE. [Concomitant]
     Active Substance: PREDNISONE
     Indication: UVEITIS
     Dosage: 2 MG/KG WITH TAPER
     Route: 048
     Dates: start: 201610, end: 201708
  5. HUMIRA [Suspect]
     Active Substance: ADALIMUMAB
     Indication: URTICARIA
     Route: 058
     Dates: end: 20190102
  6. HUMIRA [Suspect]
     Active Substance: ADALIMUMAB
     Route: 058

REACTIONS (5)
  - Vogt-Koyanagi-Harada syndrome [Unknown]
  - Vision blurred [Not Recovered/Not Resolved]
  - Depressed mood [Unknown]
  - Photophobia [Not Recovered/Not Resolved]
  - Corneal transplant [Unknown]

NARRATIVE: CASE EVENT DATE: 2017
